FAERS Safety Report 8378496-2 (Version None)
Quarter: 2012Q2

REPORT INFORMATION
  Report Type: 
  Country: None (occurrence: None)
  Receive Date: 20120522
  Receipt Date: 20120514
  Transmission Date: 20120825
  Serious: Yes (Life-Threatening, Hospitalization)
  Sender: FDA-Public Use
  Company Number: ES-JNJFOC-20120513188

PATIENT
  Age: 71 Year
  Sex: Male

DRUGS (5)
  1. RISPERDAL [Suspect]
     Indication: PARKINSON'S DISEASE
     Route: 048
     Dates: start: 20110816, end: 20110820
  2. ESCITALOPRAM [Interacting]
     Indication: PARKINSON'S DISEASE
     Route: 048
     Dates: start: 20080801, end: 20110820
  3. AZILECT [Interacting]
     Indication: PARKINSON'S DISEASE
     Route: 048
     Dates: start: 20070101, end: 20110820
  4. SIMVASTATIN [Concomitant]
     Indication: HYPERLIPIDAEMIA
     Route: 048
     Dates: start: 20101101, end: 20110820
  5. QUETIAPINE [Interacting]
     Indication: PARKINSON'S DISEASE
     Route: 048
     Dates: start: 20100801, end: 20110820

REACTIONS (4)
  - HYPOTENSION [None]
  - EPISTAXIS [None]
  - TACHYCARDIA [None]
  - DRUG INTERACTION [None]
